FAERS Safety Report 6192113-1 (Version None)
Quarter: 2009Q2

REPORT INFORMATION
  Report Type: 
  Country: None (occurrence: None)
  Receive Date: 20090515
  Receipt Date: 20090507
  Transmission Date: 20091009
  Serious: Yes (Hospitalization)
  Sender: FDA-Public Use
  Company Number: JP-NOVOPROD-276578

PATIENT
  Age: 2 Year
  Sex: Female
  Weight: 9 kg

DRUGS (5)
  1. NOVORAPID CHU FLEXPEN [Suspect]
     Indication: TYPE 1 DIABETES MELLITUS
     Dosage: 20 IU, QD
     Route: 058
     Dates: start: 20080605, end: 20080611
  2. LEVEMIR [Suspect]
     Indication: TYPE 1 DIABETES MELLITUS
     Dosage: 2-3 IU, QD
     Route: 058
     Dates: start: 20080606, end: 20080611
  3. HUMULIN R [Suspect]
     Indication: TYPE 1 DIABETES MELLITUS
     Dates: start: 20080604
  4. HUMULIN R [Suspect]
     Dates: start: 20080611
  5. NOVOLIN R [Concomitant]
     Indication: TYPE 1 DIABETES MELLITUS
     Dosage: 4 U, QD
     Route: 058
     Dates: start: 20080605, end: 20080605

REACTIONS (2)
  - BLOOD GLUCOSE FLUCTUATION [None]
  - ERYTHEMA MULTIFORME [None]
